FAERS Safety Report 6093456-2 (Version None)
Quarter: 2009Q1

REPORT INFORMATION
  Report Type: 
  Country: None (occurrence: None)
  Receive Date: 20090226
  Receipt Date: 20090218
  Transmission Date: 20090719
  Serious: Yes (Hospitalization)
  Sender: FDA-Public Use
  Company Number: FR-AMGEN-UK311987

PATIENT
  Sex: Female

DRUGS (3)
  1. NEULASTA [Suspect]
     Indication: DRUG USE FOR UNKNOWN INDICATION
     Route: 058
     Dates: start: 20080320, end: 20080320
  2. TAXOL [Concomitant]
     Route: 065
     Dates: start: 20080319
  3. CARBOPLATIN [Concomitant]
     Route: 065
     Dates: start: 20080319

REACTIONS (2)
  - HYPERTHERMIA [None]
  - PAIN [None]
